FAERS Safety Report 14045163 (Version 1)
Quarter: 2017Q4

REPORT INFORMATION
  Report Type: Spontaneous
  Country: US (occurrence: US)
  Receive Date: 20171005
  Receipt Date: 20171005
  Transmission Date: 20180321
  Serious: No
  Sender: FDA-Public Use
  Company Number: US-INDIVIOR LIMITED-INDV-102127-2017

PATIENT
  Sex: Male

DRUGS (2)
  1. SUBOXONE [Suspect]
     Active Substance: BUPRENORPHINE HYDROCHLORIDE\NALOXONE HYDROCHLORIDE
     Indication: DRUG USE DISORDER
     Dosage: UNK
     Route: 060
  2. HEROIN [Suspect]
     Active Substance: DIAMORPHINE
     Indication: PRODUCT USED FOR UNKNOWN INDICATION
     Dosage: UNK
     Route: 065

REACTIONS (11)
  - Drug dependence [Not Recovered/Not Resolved]
  - Feeling abnormal [Not Recovered/Not Resolved]
  - Irritability [Not Recovered/Not Resolved]
  - Substance abuse [Unknown]
  - Malaise [Not Recovered/Not Resolved]
  - Product preparation error [Unknown]
  - Drug withdrawal syndrome [Not Recovered/Not Resolved]
  - Euphoric mood [Not Recovered/Not Resolved]
  - Depression [Not Recovered/Not Resolved]
  - Vomiting [Not Recovered/Not Resolved]
  - Miosis [Not Recovered/Not Resolved]
